FAERS Safety Report 25933738 (Version 1)
Quarter: 2025Q4

REPORT INFORMATION
  Report Type: Spontaneous
  Country: EU (occurrence: EU)
  Receive Date: 20251017
  Receipt Date: 20251017
  Transmission Date: 20260118
  Serious: Yes (Hospitalization)
  Sender: JOHNSON AND JOHNSON
  Company Number: EU-JNJFOC-20251005583

PATIENT
  Age: 60 Year
  Sex: Female

DRUGS (2)
  1. CILTACABTAGENE AUTOLEUCEL [Suspect]
     Active Substance: CILTACABTAGENE AUTOLEUCEL
     Indication: Plasma cell myeloma
     Dosage: 3.2X10 6/KG BODYWEIGHT, D0
     Route: 065
  2. CILTACABTAGENE AUTOLEUCEL [Suspect]
     Active Substance: CILTACABTAGENE AUTOLEUCEL
     Indication: Acute lymphocytic leukaemia
     Dosage: 24 HOURS LATER (0.6X10 6/KG BODYWEIGHT, D+1)
     Route: 065

REACTIONS (6)
  - Cytokine release syndrome [Recovering/Resolving]
  - Immune effector cell-associated neurotoxicity syndrome [Recovering/Resolving]
  - Cytopenia [Recovering/Resolving]
  - Immune effector cell-associated HLH-like syndrome [Recovering/Resolving]
  - Cognitive disorder [Recovering/Resolving]
  - Off label use [Unknown]
